FAERS Safety Report 24349715 (Version 1)
Quarter: 2024Q3

REPORT INFORMATION
  Report Type: Other
  Country: GB (occurrence: GB)
  Receive Date: 20240923
  Receipt Date: 20240923
  Transmission Date: 20241016
  Serious: Yes (Disabling, Other)
  Sender: MACLEODS
  Company Number: GB-MHRA-TPP33280632C5197280YC1726041551632

PATIENT

DRUGS (5)
  1. SILDENAFIL [Suspect]
     Active Substance: SILDENAFIL
     Indication: Ill-defined disorder
     Route: 065
     Dates: start: 20240911
  2. SILDENAFIL [Suspect]
     Active Substance: SILDENAFIL
     Dosage: TAKE ONE HOUR BEFORE NEEDED, MAXIMUM ONE DOSE
     Route: 065
     Dates: start: 20231221
  3. BETNOVATE [Concomitant]
     Active Substance: BETAMETHASONE
     Indication: Ill-defined disorder
     Dosage: AS DIRECTED ( DO NOT USE ON THE FACE)
     Route: 065
     Dates: start: 20231221
  4. HYDROCORTISONE [Concomitant]
     Active Substance: HYDROCORTISONE\HYDROCORTISONE ACETATE
     Indication: Ill-defined disorder
     Dosage: APPLY SPARINGLY 1-2 TIMES DAILY AS REQUIRED (EC...
     Route: 065
     Dates: start: 20231221
  5. LANSOPRAZOLE [Concomitant]
     Active Substance: LANSOPRAZOLE
     Indication: Ill-defined disorder
     Dosage: TAKE ONE ONCE DAILY
     Route: 065
     Dates: start: 20231221

REACTIONS (1)
  - Visual impairment [Recovered/Resolved]

NARRATIVE: CASE EVENT DATE: 20240911
